FAERS Safety Report 16692113 (Version 1)
Quarter: 2019Q3

REPORT INFORMATION
  Report Type: Report from Study
  Country: None (occurrence: US)
  Receive Date: 20190812
  Receipt Date: 20190812
  Transmission Date: 20191004
  Serious: Yes (Other)
  Sender: FDA-Public Use
  Company Number: US-ABBVIE-19K-163-2879962-00

PATIENT
  Age: 72 Year
  Sex: Female

DRUGS (1)
  1. CREON [Suspect]
     Active Substance: PANCRELIPASE AMYLASE\PANCRELIPASE LIPASE\PANCRELIPASE PROTEASE
     Indication: PRODUCT USED FOR UNKNOWN INDICATION
     Route: 048

REACTIONS (14)
  - Hypertension [Unknown]
  - Arthralgia [Unknown]
  - Anal incontinence [Unknown]
  - Vomiting [Unknown]
  - Back pain [Unknown]
  - Diarrhoea [Unknown]
  - Fall [Unknown]
  - Hepatic enzyme increased [Unknown]
  - Abdominal pain [Unknown]
  - Surgery [Unknown]
  - Gastrooesophageal reflux disease [Unknown]
  - Nausea [Unknown]
  - Alcoholic pancreatitis [Unknown]
  - Fatigue [Unknown]

NARRATIVE: CASE EVENT DATE: 20160822
